FAERS Safety Report 9805555 (Version 3)
Quarter: 2014Q2

REPORT INFORMATION
  Report Type: Spontaneous
  Country: NL (occurrence: NL)
  Receive Date: 20140109
  Receipt Date: 20140423
  Transmission Date: 20141212
  Serious: Yes (Other)
  Sender: FDA-Public Use
  Company Number: NL-ELI_LILLY_AND_COMPANY-NL201401000419

PATIENT
  Sex: Male

DRUGS (2)
  1. ZYPADHERA [Suspect]
     Indication: PRODUCT USED FOR UNKNOWN INDICATION
     Dosage: 405 MG, UNKNOWN
     Route: 030
     Dates: start: 2011
  2. ZYPADHERA [Suspect]
     Dosage: 300 MG, UNKNOWN
     Route: 030

REACTIONS (10)
  - Dyspnoea [Unknown]
  - Discomfort [Unknown]
  - Speech disorder [Unknown]
  - Restlessness [Unknown]
  - Blood pressure increased [Recovered/Resolved]
  - Heart rate increased [Recovered/Resolved]
  - Somnolence [Recovering/Resolving]
  - Asthenia [Unknown]
  - Muscular weakness [Recovering/Resolving]
  - Sedation [Recovering/Resolving]
